FAERS Safety Report 4652055-7 (Version None)
Quarter: 2005Q2

REPORT INFORMATION
  Report Type: 
  Country: None (occurrence: None)
  Receive Date: 20050502
  Receipt Date: 20050426
  Transmission Date: 20051028
  Serious: Yes (Hospitalization, Other)
  Sender: FDA-Public Use
  Company Number: 2005062485

PATIENT
  Sex: Male
  Weight: 90.7194 kg

DRUGS (7)
  1. LIPITOR [Suspect]
     Indication: BLOOD CHOLESTEROL INCREASED
     Dosage: 40 MG (40 MG, 1 IN 1 D), ORAL
     Route: 048
     Dates: start: 20000101
  2. NICOTINIC ACID [Suspect]
     Indication: HIGH DENSITY LIPOPROTEIN DECREASED
     Dosage: 4000 MG (2000 MG, 2 IN 1 D), ORAL
     Route: 048
     Dates: start: 20000101, end: 20010101
  3. METOPROLOL TARTRATE [Concomitant]
  4. ROSIGLITAZONE MALEATE [Concomitant]
  5. LISINOPRIL [Concomitant]
  6. AMLODIPINE BESYLATE [Concomitant]
  7. FAMOTIDINE [Concomitant]

REACTIONS (7)
  - ARTERIAL OCCLUSIVE DISEASE [None]
  - CHEST PAIN [None]
  - DYSPNOEA [None]
  - HIGH DENSITY LIPOPROTEIN DECREASED [None]
  - INFLUENZA [None]
  - ULCER [None]
  - VASCULAR BYPASS GRAFT [None]
